FAERS Safety Report 5728883-3 (Version None)
Quarter: 2008Q2

REPORT INFORMATION
  Report Type: 
  Country: None (occurrence: None)
  Receive Date: 20080506
  Receipt Date: 20080505
  Transmission Date: 20081010
  Serious: Yes (Other)
  Sender: FDA-Public Use
  Company Number: A0712125A

PATIENT

DRUGS (8)
  1. ALLI [Suspect]
     Indication: DRUG USE FOR UNKNOWN INDICATION
     Dates: end: 20080401
  2. MULTI-VITAMIN [Concomitant]
  3. VITAMIN B COMPLEX CAP [Concomitant]
  4. ASCORBIC ACID [Concomitant]
  5. FLAX SEED OIL [Concomitant]
  6. FISH OIL [Concomitant]
  7. BORAGE OIL [Concomitant]
  8. BIOTIN [Concomitant]

REACTIONS (6)
  - CONSTIPATION [None]
  - FACIAL PALSY [None]
  - FLATULENCE [None]
  - FREQUENT BOWEL MOVEMENTS [None]
  - GASTROINTESTINAL DISORDER [None]
  - INFLUENZA [None]
